FAERS Safety Report 14210945 (Version 3)
Quarter: 2020Q1

REPORT INFORMATION
  Report Type: Spontaneous
  Country: US (occurrence: US)
  Receive Date: 20171121
  Receipt Date: 20200210
  Transmission Date: 20200409
  Serious: Yes (Death, Hospitalization)
  Sender: FDA-Public Use
  Company Number: US-JNJFOC-20171009645

PATIENT
  Age: 69 Year
  Sex: Male

DRUGS (5)
  1. XARELTO [Suspect]
     Active Substance: RIVAROXABAN
     Indication: SUBCLAVIAN VEIN THROMBOSIS
     Route: 048
     Dates: start: 20150629, end: 20150720
  2. COUMADIN [Suspect]
     Active Substance: WARFARIN SODIUM
     Indication: SUBCLAVIAN VEIN THROMBOSIS
     Route: 048
     Dates: end: 201510
  3. COUMADIN [Suspect]
     Active Substance: WARFARIN SODIUM
     Indication: VENA CAVA THROMBOSIS
  4. XARELTO [Suspect]
     Active Substance: RIVAROXABAN
     Indication: VENA CAVA THROMBOSIS
     Route: 048
     Dates: start: 20150721, end: 20151009
  5. XARELTO [Suspect]
     Active Substance: RIVAROXABAN
     Indication: DEEP VEIN THROMBOSIS

REACTIONS (1)
  - Gastrointestinal haemorrhage [Unknown]

NARRATIVE: CASE EVENT DATE: 20151008
